FAERS Safety Report 4314901-6 (Version None)
Quarter: 2004Q1

REPORT INFORMATION
  Report Type: 
  Country: None (occurrence: None)
  Receive Date: 20040310
  Receipt Date: 20040310
  Transmission Date: 20041129
  Serious: No
  Sender: FDA-Public Use
  Company Number: None

PATIENT
  Age: 8 Month
  Sex: Female
  Weight: 9 kg

DRUGS (1)
  1. ZONISAMIDE [Suspect]
     Dosage: 25 MG BID ORAL
     Route: 048
     Dates: start: 20031024, end: 20031029

REACTIONS (1)
  - BRADYCARDIA [None]
